FAERS Safety Report 9634001 (Version 2)
Quarter: 2013Q4

REPORT INFORMATION
  Report Type: Spontaneous
  Country: US (occurrence: US)
  Receive Date: 20131021
  Receipt Date: 20131024
  Transmission Date: 20140711
  Serious: Yes (Hospitalization)
  Sender: FDA-Public Use
  Company Number: US-BAXTER-2013BAX040857

PATIENT
  Age: 63 Year
  Sex: Male

DRUGS (4)
  1. DIANEAL LOW CALCIUM [Suspect]
     Indication: RENAL FAILURE CHRONIC
     Route: 033
     Dates: start: 201305, end: 20130928
  2. DIANEAL LOW CALCIUM [Suspect]
     Route: 033
     Dates: start: 201310
  3. DIANEAL LOW CALCIUM [Suspect]
     Indication: RENAL FAILURE CHRONIC
     Route: 033
     Dates: start: 201305, end: 20130928
  4. DIANEAL LOW CALCIUM [Suspect]
     Route: 033
     Dates: start: 201310

REACTIONS (2)
  - Hypotension [Recovered/Resolved]
  - Dehydration [Recovered/Resolved]
